FAERS Safety Report 4457890-6 (Version None)
Quarter: 2004Q3

REPORT INFORMATION
  Report Type: 
  Country: None (occurrence: None)
  Receive Date: 20040924
  Receipt Date: 20040914
  Transmission Date: 20050211
  Serious: Yes (Hospitalization)
  Sender: FDA-Public Use
  Company Number: FR-JNJFOC-20040904260

PATIENT
  Age: 23 Year
  Sex: Male

DRUGS (9)
  1. RISPERDAL [Suspect]
     Indication: DELUSION
     Route: 049
  2. HALDOL [Suspect]
     Indication: DELUSION
  3. TERCIAN [Concomitant]
     Indication: DELUSION
     Dosage: 40 MG/ML
     Route: 049
  4. LOXAPINE HCL [Suspect]
     Indication: DELUSION
  5. VALPROATE SODIUM [Suspect]
     Indication: DELUSION
     Route: 049
  6. RIVOTRIL [Suspect]
     Indication: DELUSION
     Route: 049
  7. ZYPREXA [Concomitant]
  8. AKINETON RETARD [Concomitant]
  9. CLOPIXOL [Concomitant]

REACTIONS (3)
  - AGRANULOCYTOSIS [None]
  - DRUG INTERACTION [None]
  - TONSILLITIS [None]
